FAERS Safety Report 19796960 (Version 1)
Quarter: 2021Q3

REPORT INFORMATION
  Report Type: Report from Study
  Country: ZA (occurrence: ZA)
  Receive Date: 20210906
  Receipt Date: 20210906
  Transmission Date: 20211014
  Serious: Yes (Other)
  Sender: FDA-Public Use
  Company Number: NVSC2020ZA285025

PATIENT
  Age: 31 Year
  Sex: Male

DRUGS (1)
  1. TUVIGIN [Suspect]
     Active Substance: FINGOLIMOD HYDROCHLORIDE
     Indication: RELAPSING-REMITTING MULTIPLE SCLEROSIS
     Dosage: 0.5 MG, QD
     Route: 048
     Dates: start: 20201019

REACTIONS (8)
  - Blood bilirubin unconjugated increased [Unknown]
  - Pulse abnormal [Unknown]
  - Bilirubin conjugated increased [Unknown]
  - Headache [Unknown]
  - Lymphocyte count decreased [Unknown]
  - Blood pressure fluctuation [Unknown]
  - Red blood cell count increased [Unknown]
  - Fatigue [Unknown]

NARRATIVE: CASE EVENT DATE: 20201019
